FAERS Safety Report 9716001 (Version 1)
Quarter: 2013Q4

REPORT INFORMATION
  Report Type: Spontaneous
  Country: US (occurrence: None)
  Receive Date: 20131126
  Receipt Date: 20131126
  Transmission Date: 20140711
  Serious: Yes (Other)
  Sender: FDA-Public Use
  Company Number: None

PATIENT
  Age: 73 Year
  Sex: Male

DRUGS (1)
  1. STIVARGA [Suspect]
     Indication: SOFT TISSUE NEOPLASM
     Dosage: 160MG, QD, PO
     Route: 048
     Dates: start: 20130831

REACTIONS (7)
  - Drug ineffective [None]
  - Neoplasm [None]
  - Gallbladder disorder [None]
  - Skin disorder [None]
  - Thermal burn [None]
  - Dysphonia [None]
  - Oral pain [None]
